FAERS Safety Report 8228815-2 (Version None)
Quarter: 2012Q1

REPORT INFORMATION
  Report Type: 
  Country: None (occurrence: None)
  Receive Date: 20120322
  Receipt Date: 20120312
  Transmission Date: 20120608
  Serious: Yes (Hospitalization)
  Sender: FDA-Public Use
  Company Number: JP-GLAXOSMITHKLINE-B0762472A

PATIENT
  Sex: Male
  Weight: 80 kg

DRUGS (14)
  1. PAXIL [Suspect]
     Indication: DEPRESSION
     Dosage: 20MG PER DAY
     Route: 048
     Dates: start: 20090701, end: 20110701
  2. MAGNESIUM SULFATE [Concomitant]
     Dosage: 1500MG PER DAY
     Route: 048
     Dates: end: 20110901
  3. U PAN [Concomitant]
     Dosage: .5MG PER DAY
     Route: 048
     Dates: end: 20111001
  4. LEVOFLOXACIN [Concomitant]
     Dosage: 500MG PER DAY
     Route: 048
     Dates: end: 20110901
  5. MEFENAMIC ACID [Concomitant]
     Route: 048
  6. BUFFERIN [Concomitant]
     Route: 048
  7. BUP-4 [Concomitant]
     Dosage: 10MG PER DAY
     Route: 048
  8. TAMSULOSIN HCL [Concomitant]
     Dosage: 1IUAX PER DAY
     Route: 048
  9. SULTIMIN [Concomitant]
     Dosage: 2.5MG PER DAY
     Route: 048
     Dates: end: 20111001
  10. ALLOPURINOL [Concomitant]
     Dosage: 100MG PER DAY
     Route: 048
     Dates: end: 20111001
  11. PAXIL [Suspect]
     Dosage: 30MG PER DAY
     Route: 048
     Dates: start: 20110701, end: 20110920
  12. PAXIL [Suspect]
     Dosage: 40MG PER DAY
     Route: 048
     Dates: start: 20110921
  13. LANSOPRAZOLE [Concomitant]
     Dosage: 15MG PER DAY
     Route: 048
     Dates: end: 20111001
  14. TICLOPIDINE HCL [Concomitant]
     Dosage: 100MG PER DAY
     Route: 048
     Dates: end: 20111001

REACTIONS (15)
  - GLOMERULAR FILTRATION RATE DECREASED [None]
  - BLOOD CALCIUM DECREASED [None]
  - BLOOD CREATINE PHOSPHOKINASE INCREASED [None]
  - URINE OUTPUT DECREASED [None]
  - NEUROLEPTIC MALIGNANT SYNDROME [None]
  - PYREXIA [None]
  - RENAL FAILURE [None]
  - BLOOD POTASSIUM DECREASED [None]
  - MYOGLOBINURIA [None]
  - BLOOD CREATININE INCREASED [None]
  - BLOOD CHLORIDE INCREASED [None]
  - C-REACTIVE PROTEIN INCREASED [None]
  - QUADRIPLEGIA [None]
  - RENAL IMPAIRMENT [None]
  - BLOOD UREA INCREASED [None]
